FAERS Safety Report 17566923 (Version 1)
Quarter: 2020Q1

REPORT INFORMATION
  Report Type: Spontaneous
  Country: FI (occurrence: FI)
  Receive Date: 20200320
  Receipt Date: 20200320
  Transmission Date: 20200409
  Serious: Yes (Hospitalization, Other)
  Sender: FDA-Public Use
  Company Number: FI-JNJFOC-20200324561

PATIENT
  Age: 75 Year
  Sex: Male

DRUGS (1)
  1. TRAMADOL HYDROCHLORIDE. [Suspect]
     Active Substance: TRAMADOL HYDROCHLORIDE
     Indication: PRODUCT USED FOR UNKNOWN INDICATION
     Dosage: 150 MILLIGRAM, 2/DAY
     Route: 065

REACTIONS (4)
  - Fall [Recovered/Resolved]
  - Delirium [Recovering/Resolving]
  - Confusional state [Recovering/Resolving]
  - Disorientation [Unknown]
